FAERS Safety Report 4307846-9 (Version None)
Quarter: 2004Q1

REPORT INFORMATION
  Report Type: 
  Country: None (occurrence: None)
  Receive Date: 20040226
  Receipt Date: 20031007
  Transmission Date: 20041129
  Serious: Yes (Hospitalization)
  Sender: FDA-Public Use
  Company Number: 2003180421US

PATIENT
  Age: 52 Year
  Sex: Female

DRUGS (1)
  1. CELEBREX [Suspect]
     Indication: TENDONITIS
     Dosage: 200 MG, QD, ORAL
     Route: 048
     Dates: start: 20030812, end: 20030815

REACTIONS (2)
  - DRUG HYPERSENSITIVITY [None]
  - PANCREATITIS ACUTE [None]
